FAERS Safety Report 17905872 (Version 2)
Quarter: 2020Q3

REPORT INFORMATION
  Report Type: Report from Study
  Country: CA (occurrence: CA)
  Receive Date: 20200617
  Receipt Date: 20200906
  Transmission Date: 20201103
  Serious: Yes (Other)
  Sender: FDA-Public Use
  Company Number: CA-TEVA-2020-CA-1788212

PATIENT
  Age: 45 Year
  Sex: Female

DRUGS (6)
  1. GOLD [Concomitant]
     Active Substance: GOLD
     Indication: PRODUCT USED FOR UNKNOWN INDICATION
     Route: 065
  2. METHOTREXATE. [Suspect]
     Active Substance: METHOTREXATE
     Indication: PRODUCT USED FOR UNKNOWN INDICATION
     Route: 065
  3. ETANERCEPT [Suspect]
     Active Substance: ETANERCEPT
     Indication: RHEUMATOID ARTHRITIS
     Route: 058
  4. ARAVA [Concomitant]
     Active Substance: LEFLUNOMIDE
     Indication: PRODUCT USED FOR UNKNOWN INDICATION
     Route: 065
  5. SULFASALAZINE. [Concomitant]
     Active Substance: SULFASALAZINE
     Indication: PRODUCT USED FOR UNKNOWN INDICATION
     Route: 065
  6. ORENCIA [Suspect]
     Active Substance: ABATACEPT
     Indication: PRODUCT USED FOR UNKNOWN INDICATION
     Route: 065

REACTIONS (10)
  - Abscess oral [Recovered/Resolved]
  - Infection [Recovered/Resolved]
  - Drug intolerance [Recovered/Resolved]
  - Skin induration [Recovered/Resolved]
  - Tooth infection [Recovered/Resolved]
  - Cold sweat [Recovered/Resolved]
  - Erythema [Recovered/Resolved]
  - Eating disorder [Recovered/Resolved]
  - Feeling hot [Recovered/Resolved]
  - Peripheral swelling [Recovered/Resolved]
